FAERS Safety Report 5252321-0 (Version None)
Quarter: 2007Q1

REPORT INFORMATION
  Report Type: 
  Country: None (occurrence: None)
  Receive Date: 20070301
  Receipt Date: 20060404
  Transmission Date: 20070707
  Serious: No
  Sender: FDA-Public Use
  Company Number: US-BRISTOL-MYERS SQUIBB COMPANY-13337019

PATIENT
  Sex: Female

DRUGS (2)
  1. PARAPLATIN [Suspect]
  2. TAXOL [Suspect]

REACTIONS (1)
  - PAPILLOEDEMA [None]
